FAERS Safety Report 6137824-9 (Version None)
Quarter: 2009Q1

REPORT INFORMATION
  Report Type: 
  Country: None (occurrence: None)
  Receive Date: 20090331
  Receipt Date: 20090320
  Transmission Date: 20090719
  Serious: Yes (Hospitalization)
  Sender: FDA-Public Use
  Company Number: GB-AMGEN-US244515

PATIENT
  Sex: Male

DRUGS (7)
  1. ENBREL [Suspect]
     Indication: PSORIATIC ARTHROPATHY
     Route: 058
     Dates: start: 20040705
  2. CYCLOSPORINE [Concomitant]
     Route: 048
  3. CYCLOSPORINE [Concomitant]
     Route: 048
  4. METHOTREXATE [Concomitant]
     Route: 058
     Dates: start: 19980101
  5. CLOBETASOL PROPIONATE [Concomitant]
     Dosage: UNKNOWN
     Route: 061
  6. BETAMETHASONE VALERATE [Concomitant]
     Route: 065
  7. FUSIDIC ACID [Concomitant]
     Route: 065

REACTIONS (12)
  - ABDOMINAL PAIN [None]
  - CONDITION AGGRAVATED [None]
  - CROHN'S DISEASE [None]
  - DIARRHOEA [None]
  - DRUG ADMINISTRATION ERROR [None]
  - FAECES DISCOLOURED [None]
  - GASTROINTESTINAL INFECTION [None]
  - INFLUENZA LIKE ILLNESS [None]
  - MYALGIA [None]
  - PSORIASIS [None]
  - RASH [None]
  - RECTAL HAEMORRHAGE [None]
